FAERS Safety Report 25440823 (Version 1)
Quarter: 2025Q2

REPORT INFORMATION
  Report Type: Spontaneous
  Country: US (occurrence: None)
  Receive Date: 20250616
  Receipt Date: 20250616
  Transmission Date: 20250716
  Serious: Yes (Hospitalization)
  Sender: FDA-CTU
  Company Number: None

PATIENT
  Age: 56 Year
  Sex: Male
  Weight: 107.3 kg

DRUGS (3)
  1. ENFORTUMAB VEDOTIN [Suspect]
     Active Substance: ENFORTUMAB VEDOTIN
     Indication: Rectal adenocarcinoma
     Route: 042
     Dates: start: 20250508
  2. MEDROL [Suspect]
     Active Substance: METHYLPREDNISOLONE
  3. GLIMEPIRIDE [Suspect]
     Active Substance: GLIMEPIRIDE

REACTIONS (3)
  - Hyperglycaemia [None]
  - Dry eye [None]
  - Rash [None]

NARRATIVE: CASE EVENT DATE: 20250603
